FAERS Safety Report 6401445-0 (Version None)
Quarter: 2009Q4

REPORT INFORMATION
  Report Type: 
  Country: None (occurrence: None)
  Receive Date: 20091015
  Receipt Date: 20070316
  Transmission Date: 20100525
  Serious: Yes (Hospitalization, Other)
  Sender: FDA-Public Use
  Company Number: US-ASTRAZENECA-2006UW07042

PATIENT
  Age: 612 Month
  Sex: Male
  Weight: 129.7 kg

DRUGS (58)
  1. SEROQUEL [Suspect]
     Indication: BIPOLAR DISORDER
     Dosage: 100 MG TO 800 MG
     Route: 048
     Dates: start: 20020101
  2. SEROQUEL [Suspect]
     Indication: POST-TRAUMATIC STRESS DISORDER
     Dosage: 100 MG TO 800 MG
     Route: 048
     Dates: start: 20020101
  3. SEROQUEL [Suspect]
     Indication: DEPRESSION
     Dosage: 100 MG TO 800 MG
     Route: 048
     Dates: start: 20020101
  4. SEROQUEL [Suspect]
     Dosage: 5 MG TO 800 MG PER DAY
     Route: 048
     Dates: start: 20020605, end: 20060501
  5. SEROQUEL [Suspect]
     Dosage: 5 MG TO 800 MG PER DAY
     Route: 048
     Dates: start: 20020605, end: 20060501
  6. SEROQUEL [Suspect]
     Dosage: 5 MG TO 800 MG PER DAY
     Route: 048
     Dates: start: 20020605, end: 20060501
  7. KEFLEX [Concomitant]
     Route: 048
     Dates: start: 20050325
  8. LAMICTAL [Concomitant]
     Indication: AFFECTIVE DISORDER
     Dosage: 25 MG TO 100 MG, DAILY
     Route: 048
     Dates: start: 20050325
  9. PROZAC [Concomitant]
     Indication: MAJOR DEPRESSION
     Dosage: 20 MG TO 80 MG, DAILY
     Route: 048
     Dates: start: 20020916
  10. PROZAC [Concomitant]
     Indication: POST-TRAUMATIC STRESS DISORDER
     Dosage: 20 MG TO 80 MG, DAILY
     Route: 048
     Dates: start: 20020916
  11. PROZAC [Concomitant]
     Indication: BIPOLAR DISORDER
     Dosage: 20 MG TO 80 MG, DAILY
     Route: 048
     Dates: start: 20020916
  12. VALPROIC ACID [Concomitant]
     Indication: MOOD SWINGS
     Dosage: 500 MG TO 1500 MG, AT NIGHT
     Dates: start: 20050325
  13. VALPROIC ACID [Concomitant]
     Indication: BIPOLAR DISORDER
     Dosage: 500 MG TO 1500 MG, AT NIGHT
     Dates: start: 20050325
  14. NIACIN [Concomitant]
     Indication: DYSLIPIDAEMIA
     Dosage: 250 MG TO 1000 MG, DAILY
     Dates: start: 20020425
  15. NIACIN [Concomitant]
     Indication: MIXED HYPERLIPIDAEMIA
     Dosage: 250 MG TO 1000 MG, DAILY
     Dates: start: 20020425
  16. NIACIN [Concomitant]
     Indication: WEIGHT DECREASED
     Dosage: 250 MG TO 1000 MG, DAILY
     Dates: start: 20020425
  17. LISINOPRIL [Concomitant]
     Indication: BLOOD PRESSURE
     Dosage: 20 MG TO 25 MG TWO TIMES A DAY
     Dates: start: 20050325
  18. SYNTHROID [Concomitant]
     Indication: HYPOTHYROIDISM
     Route: 048
     Dates: start: 20020916
  19. ALLOPURINOL [Concomitant]
     Indication: HYPERURICAEMIA
     Route: 048
     Dates: start: 20010822
  20. ALLOPURINOL [Concomitant]
     Indication: GOUTY ARTHRITIS
     Route: 048
     Dates: start: 20010822
  21. ALLOPURINOL [Concomitant]
     Indication: GOUT
     Route: 048
     Dates: start: 20010822
  22. FOSINOPRIL SODIUM [Concomitant]
     Indication: ESSENTIAL HYPERTENSION
     Dates: start: 20020916
  23. VIAGRA [Concomitant]
     Indication: ERECTILE DYSFUNCTION
     Dosage: 50 MG ,AS PER REQUIRED
     Dates: start: 20020404
  24. ZOCOR [Concomitant]
     Indication: DYSLIPIDAEMIA
     Dosage: 20 MG TO 40 MG, AT NIGHT
     Route: 048
     Dates: start: 20050325
  25. ASPIRIN [Concomitant]
     Route: 048
     Dates: start: 20030925
  26. VISTARIL [Concomitant]
     Dates: start: 20050325
  27. WELLBUTRIN SR [Concomitant]
     Route: 048
     Dates: start: 20050325
  28. CARDIZEM CD [Concomitant]
     Route: 048
     Dates: start: 20050325
  29. DEPAKOTE [Concomitant]
     Dosage: 500 MG TO 1500 MG ,DAILY
     Route: 048
     Dates: start: 20020916
  30. MOTRIN [Concomitant]
     Indication: PAIN
     Dosage: 600 MG EVERY SIX HOURS, AS PER REQUIRED
     Route: 048
     Dates: start: 20050325
  31. INDOCIN [Concomitant]
     Indication: GOUT
     Dates: start: 20020916
  32. SIMVASTATIN [Concomitant]
     Dosage: 20 MG TO 80 MG, AT NIGHT
     Route: 048
     Dates: start: 20050325
  33. TRAZODONE [Concomitant]
     Dosage: 50 MG TWO, AT NIGHT
     Route: 048
     Dates: start: 20020916
  34. FELODIPINE [Concomitant]
     Route: 048
     Dates: start: 20020916
  35. VASOTEC [Concomitant]
     Dates: start: 20030922
  36. LOPID [Concomitant]
     Indication: HYPERLIPIDAEMIA
     Dosage: 600 MG TO 1200 MG ,DAILY
     Dates: start: 20030922
  37. LOPID [Concomitant]
     Indication: WEIGHT DECREASED
     Dosage: 600 MG TO 1200 MG ,DAILY
     Dates: start: 20030922
  38. TESTOSTERONE [Concomitant]
     Dosage: 200 MG, ONE INJECTION PER MONTH
     Dates: start: 20020916
  39. ZIPRASIDONE HCL [Concomitant]
     Dates: start: 20060101
  40. ZIPRASIDONE HCL [Concomitant]
     Dates: start: 20060501
  41. AMBIEN [Concomitant]
     Indication: SLEEP DISORDER
     Dosage: 10 MG ,AS PER REQUIRED
     Dates: start: 20060101
  42. RISPERDAL [Concomitant]
     Dates: start: 20010102, end: 20010125
  43. ZYPREXA [Concomitant]
     Dates: start: 20001115, end: 20020605
  44. CLONAZEPAM [Concomitant]
  45. ZOLOFT [Concomitant]
  46. XENICAL [Concomitant]
     Indication: OBESITY
     Dates: start: 20030107
  47. XENICAL [Concomitant]
     Indication: WEIGHT DECREASED
     Dates: start: 20030107
  48. ACETAMINOPHEN [Concomitant]
  49. GABAPENTIN [Concomitant]
  50. SERTRALINE HCL [Concomitant]
  51. NORVASC [Concomitant]
  52. MOM [Concomitant]
  53. LOVENOX [Concomitant]
  54. UNASYN [Concomitant]
  55. PANTOPRAZOLE SODIUM [Concomitant]
  56. GEMFIBROZIL [Concomitant]
  57. HYDROCHLOROTHIAZIDE [Concomitant]
  58. TESTOSTERONE CIPIONATE [Concomitant]

REACTIONS (18)
  - ANAEMIA [None]
  - ARTHROPOD BITE [None]
  - BURSITIS INFECTIVE STAPHYLOCOCCAL [None]
  - CELLULITIS [None]
  - DIVERTICULITIS [None]
  - DIZZINESS [None]
  - FALL [None]
  - GAMMOPATHY [None]
  - GLUCOSE TOLERANCE IMPAIRED [None]
  - HYPERGLYCAEMIA [None]
  - HYPERPROTEINAEMIA [None]
  - PERITONITIS [None]
  - RENAL FAILURE [None]
  - ROTATOR CUFF SYNDROME [None]
  - SLEEP APNOEA SYNDROME [None]
  - SOMNOLENCE [None]
  - SUICIDAL IDEATION [None]
  - TYPE 2 DIABETES MELLITUS [None]
